FAERS Safety Report 5221663-7 (Version None)
Quarter: 2007Q1

REPORT INFORMATION
  Report Type: 
  Country: None (occurrence: None)
  Receive Date: 20070129
  Receipt Date: 20070124
  Transmission Date: 20070707
  Serious: Yes (Hospitalization)
  Sender: FDA-Public Use
  Company Number: US-BRISTOL-MYERS SQUIBB COMPANY-13611744

PATIENT
  Age: 52 Year
  Sex: Male
  Weight: 95 kg

DRUGS (1)
  1. DEFINITY [Suspect]
     Indication: ECHOCARDIOGRAM
     Route: 042
     Dates: start: 20061213, end: 20061213

REACTIONS (5)
  - CHEST PAIN [None]
  - DYSPNOEA [None]
  - RASH [None]
  - THROAT TIGHTNESS [None]
  - URTICARIA [None]
